FAERS Safety Report 15791376 (Version 2)
Quarter: 2019Q1

REPORT INFORMATION
  Report Type: Spontaneous
  Country: US (occurrence: US)
  Receive Date: 20190104
  Receipt Date: 20190110
  Transmission Date: 20190417
  Serious: No
  Sender: FDA-Public Use
  Company Number: US-BIOMARINAP-US-2018-121304

PATIENT
  Age: 51 Year
  Sex: Female
  Weight: 110.07 kg

DRUGS (1)
  1. KUVAN [Suspect]
     Active Substance: SAPROPTERIN DIHYDROCHLORIDE
     Indication: PHENYLKETONURIA
     Dosage: 2200 MILLIGRAM, QD
     Route: 065

REACTIONS (2)
  - Food poisoning [Unknown]
  - Vomiting [Unknown]

NARRATIVE: CASE EVENT DATE: 201812
